FAERS Safety Report 14045606 (Version 4)
Quarter: 2019Q1

REPORT INFORMATION
  Report Type: Spontaneous
  Country: US (occurrence: US)
  Receive Date: 20171005
  Receipt Date: 20190219
  Transmission Date: 20190417
  Serious: Yes (Hospitalization, Other)
  Sender: FDA-Public Use
  Company Number: US-PFIZER INC-2017409479

PATIENT
  Age: 73 Year
  Sex: Female
  Weight: 61 kg

DRUGS (5)
  1. FEMARA [Suspect]
     Active Substance: LETROZOLE
     Indication: NEOPLASM MALIGNANT
     Dosage: 2.5 MG, 1X/DAY (ONCE DAILY)
     Route: 048
     Dates: start: 201707
  2. IBRANCE [Suspect]
     Active Substance: PALBOCICLIB
     Indication: BREAST CANCER FEMALE
     Dosage: 125 MG, CYCLIC (ONCE DAILY FOR 21 DAYS THEN 7 DAYS OFF)
     Route: 048
     Dates: start: 201708
  3. IBRANCE [Suspect]
     Active Substance: PALBOCICLIB
     Dosage: 125 MG, 1X/DAY (ONCE DAILY)
     Dates: end: 201709
  4. IBRANCE [Suspect]
     Active Substance: PALBOCICLIB
     Dosage: 125 MG, CYCLIC (ONCE DAILY FOR 21 DAYS THEN 7 DAYS OFF)
     Route: 048
  5. FEMARA [Suspect]
     Active Substance: LETROZOLE
     Dosage: 2.5 MG, 1X/DAY (ONCE DAILY)
     Route: 048
     Dates: start: 201708

REACTIONS (9)
  - Alopecia [Not Recovered/Not Resolved]
  - Eye disorder [Unknown]
  - Impaired healing [Unknown]
  - Dysphagia [Not Recovered/Not Resolved]
  - Throat irritation [Unknown]
  - Reading disorder [Unknown]
  - Fall [Recovering/Resolving]
  - Femur fracture [Recovering/Resolving]
  - Lower limb fracture [Recovered/Resolved]

NARRATIVE: CASE EVENT DATE: 20170913
